FAERS Safety Report 7576725-6 (Version None)
Quarter: 2011Q2

REPORT INFORMATION
  Report Type: 
  Country: None (occurrence: None)
  Receive Date: 20110628
  Receipt Date: 20101207
  Transmission Date: 20111010
  Serious: Yes (Death, Disabling)
  Sender: FDA-Public Use
  Company Number: US-BAYER-201035270NA

PATIENT
  Sex: Male
  Weight: 61.5 kg

DRUGS (31)
  1. OMNISCAN [Suspect]
     Indication: ANGIOGRAM
  2. DIOVAN [Concomitant]
  3. DOXAZOSIN MESYLATE [Concomitant]
  4. FLUTICASONE PROPIONATE [Concomitant]
  5. DILTIAZEM CD [Concomitant]
  6. MAGNEVIST [Suspect]
     Indication: IMAGING PROCEDURE
     Dosage: 20 ML TWICE
     Dates: start: 20040510, end: 20040510
  7. MAGNEVIST [Suspect]
     Indication: ANGIOGRAM
  8. EPOGEN [Concomitant]
  9. DIATX [Concomitant]
  10. DEXSOL [Concomitant]
  11. LASIX [Concomitant]
  12. TAZTIA [Concomitant]
  13. PREDNISONE [Concomitant]
     Dosage: UNK
     Dates: start: 20020101
  14. NEPHROCAPS [Concomitant]
  15. OMNISCAN [Suspect]
     Indication: IMAGING PROCEDURE
     Dosage: 40 ML, ONCE
     Dates: start: 20040330, end: 20040330
  16. CLONIDINE [Concomitant]
  17. ASPIRIN [Concomitant]
  18. TIAZAC [Concomitant]
  19. LISINOPRIL [Concomitant]
  20. TOPROL-XL [Concomitant]
  21. ACEON [Concomitant]
  22. PREDNISONE [Concomitant]
     Dosage: UNK
     Dates: start: 20060101
  23. TRIAMCINOLONE [Concomitant]
  24. VENOFER [Concomitant]
  25. ZEMPLAR [Concomitant]
  26. PREDNISONE [Concomitant]
     Dosage: UNK
     Dates: start: 20040101
  27. TUMS [CALCIUM CARBONATE] [Concomitant]
  28. ROCALTROL [Concomitant]
  29. NORVASC [Concomitant]
  30. SODIUM BICARBONATE [Concomitant]
  31. ATENOLOL [Concomitant]

REACTIONS (20)
  - MOBILITY DECREASED [None]
  - SKIN HYPERTROPHY [None]
  - PRURITUS GENERALISED [None]
  - PHYSICAL DISABILITY [None]
  - ABASIA [None]
  - JOINT CONTRACTURE [None]
  - FIBROSIS [None]
  - SKIN INDURATION [None]
  - OEDEMA PERIPHERAL [None]
  - DEFORMITY [None]
  - GENERAL PHYSICAL HEALTH DETERIORATION [None]
  - SKIN TIGHTNESS [None]
  - PAIN [None]
  - RASH GENERALISED [None]
  - SKIN EXFOLIATION [None]
  - FATIGUE [None]
  - NEPHROGENIC SYSTEMIC FIBROSIS [None]
  - SCAR [None]
  - JOINT STIFFNESS [None]
  - SKIN PLAQUE [None]
